FAERS Safety Report 13694018 (Version 1)
Quarter: 2017Q2

REPORT INFORMATION
  Report Type: Other
  Country: ES (occurrence: ES)
  Receive Date: 20170627
  Receipt Date: 20170627
  Transmission Date: 20170830
  Serious: Yes (Life-Threatening, Hospitalization, Disabling)
  Sender: FDA-Public Use
  Company Number: ES-CELLTRION INC.-2017ES008311

PATIENT

DRUGS (3)
  1. INFLECTRA [Suspect]
     Active Substance: INFLIXIMAB-DYYB
     Indication: CROHN^S DISEASE
     Dosage: 450 MG, EVERY 8 WEEKS
     Route: 042
     Dates: start: 20170125, end: 20170330
  2. AZATHIOPRINE. [Suspect]
     Active Substance: AZATHIOPRINE
     Indication: CROHN^S DISEASE
     Dosage: 150 MG, DAILY
     Route: 048
     Dates: start: 20161115, end: 20170330
  3. HUMIRA [Suspect]
     Active Substance: ADALIMUMAB
     Indication: PRODUCT USED FOR UNKNOWN INDICATION
     Dosage: 40 MG, EVERY 2 WEEKS
     Route: 058
     Dates: start: 20161115, end: 20170107

REACTIONS (1)
  - Colon neoplasm [Recovering/Resolving]

NARRATIVE: CASE EVENT DATE: 20170313
